FAERS Safety Report 5401288-0 (Version None)
Quarter: 2007Q3

REPORT INFORMATION
  Report Type: 
  Country: None (occurrence: None)
  Receive Date: 20070731
  Receipt Date: 20070727
  Transmission Date: 20080115
  Serious: Yes (Disabling)
  Sender: FDA-Public Use
  Company Number: FR-BRISTOL-MYERS SQUIBB COMPANY-13526033

PATIENT
  Age: 63 Year
  Sex: Female
  Weight: 81 kg

DRUGS (3)
  1. APROVEL TABS 150 MG [Suspect]
     Indication: HYPERTENSION
     Route: 048
     Dates: start: 20060111, end: 20060927
  2. APROVEL TABS 150 MG [Suspect]
     Indication: DIABETES MELLITUS
     Route: 048
     Dates: start: 20060111, end: 20060927
  3. STAGID [Concomitant]
     Dates: start: 19990101

REACTIONS (1)
  - PSORIASIS [None]
